FAERS Safety Report 7996836 (Version 2)
Quarter: 2012Q4

REPORT INFORMATION
  Report Type: 
  Country: CA (occurrence: CA)
  Receive Date: 20110617
  Receipt Date: 20121029
  Transmission Date: 20130627
  Serious: Yes (Other)
  Sender: FDA-Public Use
  Company Number: PHMT2007CA01405

PATIENT
  Age: 52 Year
  Sex: Female

DRUGS (1)
  1. SANDOSTATIN LAR [Suspect]
     Indication: CARCINOID TUMOUR
     Dosage: 30 mg for every 4 weeks
     Route: 030
     Dates: start: 20060206

REACTIONS (9)
  - Syncope [Recovering/Resolving]
  - Loss of consciousness [Recovering/Resolving]
  - Incontinence [Unknown]
  - Hypotension [Unknown]
  - Convulsion [Not Recovered/Not Resolved]
  - Dizziness [Unknown]
  - Eye movement disorder [Unknown]
  - Burning sensation [Unknown]
  - Cough [Unknown]
